FAERS Safety Report 5352274-0 (Version None)
Quarter: 2007Q2

REPORT INFORMATION
  Report Type: 
  Country: None (occurrence: None)
  Receive Date: 20070611
  Receipt Date: 20070606
  Transmission Date: 20071010
  Serious: Yes (Other)
  Sender: FDA-Public Use
  Company Number: JP-AVENTIS-200714573GDDC

PATIENT
  Age: 58 Year
  Sex: Male

DRUGS (5)
  1. RIMACTANE [Suspect]
     Indication: PULMONARY TUBERCULOSIS
     Dosage: DOSE: UNK
  2. PYRAMIDE [Suspect]
     Indication: PULMONARY TUBERCULOSIS
     Dosage: DOSE: UNK
  3. ISCOTIN                            /00030201/ [Suspect]
     Indication: PULMONARY TUBERCULOSIS
     Dosage: DOSE: UNK
  4. STREPTOMYCIN [Suspect]
     Indication: PULMONARY TUBERCULOSIS
     Dosage: DOSE: UNK
  5. ETHAMBUTOL HYDROCHLORIDE [Suspect]
     Indication: PULMONARY TUBERCULOSIS
     Dosage: DOSE: UNK

REACTIONS (2)
  - HERPES ZOSTER DISSEMINATED [None]
  - IMMUNE RECONSTITUTION SYNDROME [None]
